FAERS Safety Report 4808309-4 (Version None)
Quarter: 2005Q4

REPORT INFORMATION
  Report Type: 
  Country: None (occurrence: None)
  Receive Date: 20051021
  Receipt Date: 20040817
  Transmission Date: 20060501
  Serious: Yes (Other)
  Sender: FDA-Public Use
  Company Number: DE_040814131

PATIENT
  Age: 43 Year
  Sex: Male

DRUGS (4)
  1. ZYPREXA [Suspect]
     Indication: SCHIZOPHRENIA
     Dates: start: 20040701, end: 20040817
  2. FLUANXOL (FLUPENTIXOL DECANOATE) [Concomitant]
  3. CIATYL (CLOPENTHIXOL HYDROCHLORIDE) [Concomitant]
  4. TRUXAL (CHLORPROTHIXENE HYDROCHLORIDE) [Concomitant]

REACTIONS (4)
  - EOSINOPHILIA [None]
  - GENERAL NUTRITION DISORDER [None]
  - LEUKOCYTOSIS [None]
  - NEUTROPENIA [None]
